FAERS Safety Report 15534543 (Version 1)
Quarter: 2018Q4

REPORT INFORMATION
  Report Type: Spontaneous
  Country: FR (occurrence: FR)
  Receive Date: 20181022
  Receipt Date: 20181022
  Transmission Date: 20190205
  Serious: Yes (Other)
  Sender: FDA-Public Use
  Company Number: FR-SUN PHARMACEUTICAL INDUSTRIES LTD-2018RR-181231

PATIENT
  Age: 63 Year
  Sex: Male

DRUGS (12)
  1. MORPHINE [Concomitant]
     Active Substance: MORPHINE
     Indication: PAIN
     Dosage: NON RENSEIGNEE ()
     Route: 065
     Dates: start: 20180422, end: 20180422
  2. PARACETAMOL [Suspect]
     Active Substance: ACETAMINOPHEN
     Indication: PAIN
     Dosage: NON RENSEIGNEE ()
     Route: 048
     Dates: start: 20180415
  3. NICOTINAMIDE [Suspect]
     Active Substance: NIACINAMIDE
     Indication: HYPOVITAMINOSIS
     Dosage: NON RENSEIGNEE ()
     Route: 048
     Dates: start: 20180417, end: 20180421
  4. THIAMINE. [Suspect]
     Active Substance: THIAMINE
     Indication: HYPOVITAMINOSIS
     Dosage: NON RENSEIGNEE ()
     Route: 065
     Dates: start: 20180417, end: 20180421
  5. PYRIDOXINE [Suspect]
     Active Substance: PYRIDOXINE
     Indication: HYPOVITAMINOSIS
     Dosage: NON RENSEIGNEE ()
     Route: 065
     Dates: start: 20180417, end: 20180421
  6. INSULINE [Suspect]
     Active Substance: INSULIN NOS
     Indication: DIABETES MELLITUS
     Dosage: NON RENSEIGNEE ()
     Route: 058
     Dates: start: 20180420
  7. KEPPRA [Suspect]
     Active Substance: LEVETIRACETAM
     Indication: EPILEPSY
     Dosage: NON RENSEIGNEE ()
     Route: 048
     Dates: start: 20180415
  8. PRAVASTATINE [Suspect]
     Active Substance: PRAVASTATIN
     Indication: BLOOD CHOLESTEROL
     Dosage: NON RENSEIGNEE ()
     Route: 045
     Dates: start: 20180417
  9. ACICLOVIR [Suspect]
     Active Substance: ACYCLOVIR
     Indication: HERPES SIMPLEX
     Dosage: NON RENSEIGNEE ()
     Route: 042
     Dates: start: 20180415
  10. SERESTA [Suspect]
     Active Substance: OXAZEPAM
     Indication: DEPRESSION
     Dosage: NON RENSEIGNEE ()
     Route: 048
     Dates: start: 20180419
  11. LOVENOX [Suspect]
     Active Substance: ENOXAPARIN SODIUM
     Indication: THROMBOSIS PROPHYLAXIS
     Dosage: NON RENSEIGNEE ()
     Route: 058
     Dates: start: 20180417
  12. RIVOTRIL [Concomitant]
     Active Substance: CLONAZEPAM
     Indication: EPILEPSY
     Dosage: NON RENSEIGNEE ()
     Route: 048
     Dates: start: 20180416, end: 20180416

REACTIONS (3)
  - Overdose [Recovered/Resolved]
  - Hyponatraemia [Recovered/Resolved]
  - Acute kidney injury [Recovered/Resolved]

NARRATIVE: CASE EVENT DATE: 20180418
